FAERS Safety Report 25322709 (Version 1)
Quarter: 2025Q2

REPORT INFORMATION
  Report Type: Spontaneous
  Country: CN (occurrence: CN)
  Receive Date: 20250516
  Receipt Date: 20250516
  Transmission Date: 20250716
  Serious: Yes (Hospitalization)
  Sender: SANDOZ
  Company Number: CN-002147023-NVSC2025CN076329

PATIENT
  Age: 7 Year
  Sex: Female
  Weight: 24.5 kg

DRUGS (1)
  1. DEXAMETHASONE\TOBRAMYCIN [Suspect]
     Active Substance: DEXAMETHASONE\TOBRAMYCIN
     Indication: Antiinflammatory therapy
     Dosage: UNK, QD (1 UNIT)
     Route: 047
     Dates: start: 20250501, end: 20250501

REACTIONS (5)
  - Intraocular pressure increased [Recovered/Resolved]
  - Ocular hyperaemia [Unknown]
  - Eye swelling [Unknown]
  - Eyelids pruritus [Unknown]
  - Eyelid pain [Unknown]

NARRATIVE: CASE EVENT DATE: 20250501
